FAERS Safety Report 19459201 (Version 2)
Quarter: 2021Q3

REPORT INFORMATION
  Report Type: Report from Study
  Country: BR (occurrence: BR)
  Receive Date: 20210624
  Receipt Date: 20210805
  Transmission Date: 20211014
  Serious: Yes (Hospitalization, Other)
  Sender: FDA-Public Use
  Company Number: BR-TAKEDA-2021TUS037899

PATIENT
  Age: 45 Year
  Sex: Male
  Weight: 82 kg

DRUGS (22)
  1. NUMESULIDA [Concomitant]
     Indication: CONTUSION
     Dosage: 100 MILLIGRAM, QD
     Route: 065
     Dates: start: 20161101, end: 20161102
  2. PARACETAMOL [Concomitant]
     Active Substance: ACETAMINOPHEN
     Indication: ARTHRALGIA
     Dosage: 750 MILLIGRAM, QD
     Route: 065
     Dates: start: 20161024, end: 20161026
  3. HEMO?8R [Suspect]
     Active Substance: ANTIHEMOPHILIC FACTOR, HUMAN RECOMBINANT
     Dosage: 4000 INTERNATIONAL UNIT, BEFORE SURGERY
     Route: 042
     Dates: start: 20210612, end: 20210617
  4. PARACETAMOL [Concomitant]
     Active Substance: ACETAMINOPHEN
     Indication: CONTUSION
     Dosage: 750 MILLIGRAM, QD
     Route: 065
     Dates: start: 20161107, end: 20161108
  5. HEMO?8R [Suspect]
     Active Substance: ANTIHEMOPHILIC FACTOR, HUMAN RECOMBINANT
     Dosage: 2000 INTERNATIONAL UNIT, 12/12H UNTIL THE 7TH DAY OF SURGERY
     Route: 042
     Dates: start: 20210612, end: 20210617
  6. NIMESULIDA [Concomitant]
     Active Substance: NIMESULIDE
     Dosage: 100 MILLIGRAM, QD
     Route: 065
     Dates: start: 20161101, end: 20161102
  7. DIPROSPAN [Concomitant]
     Active Substance: BETAMETHASONE DIPROPIONATE\BETAMETHASONE SODIUM PHOSPHATE
     Indication: PAIN
     Dosage: 7 MILLIGRAM, QD
     Route: 065
     Dates: start: 20161024, end: 20161026
  8. IBUPROFEN. [Concomitant]
     Active Substance: IBUPROFEN
     Indication: HEADACHE
     Dosage: 600 MILLIGRAM AS NEEDED
     Route: 065
     Dates: start: 20160406, end: 20160406
  9. IBUPROFENO [Concomitant]
     Active Substance: IBUPROFEN
     Indication: ARTHRALGIA
     Dosage: 600 MILLIGRAM, QD
     Route: 065
     Dates: start: 20160705, end: 20160705
  10. NIMESULIDA [Concomitant]
     Active Substance: NIMESULIDE
     Indication: ARTHRALGIA
     Dosage: 100 MILLIGRAM, QD
     Route: 065
     Dates: start: 20170226, end: 20170227
  11. PARACETAMOL [Concomitant]
     Active Substance: ACETAMINOPHEN
     Indication: PAIN
     Dosage: 750 MILLIGRAM, QD
     Route: 065
     Dates: start: 20160920, end: 20160921
  12. HEMO?8R [Suspect]
     Active Substance: ANTIHEMOPHILIC FACTOR, HUMAN RECOMBINANT
     Dosage: 2000 INTERNATIONAL UNIT, 6H AFTER THE FIRST DOSE
     Route: 042
     Dates: start: 20210612, end: 20210617
  13. DIPROSPAN [Concomitant]
     Active Substance: BETAMETHASONE DIPROPIONATE\BETAMETHASONE SODIUM PHOSPHATE
     Indication: JOINT EFFUSION
  14. MELOXICAN [Concomitant]
     Active Substance: MELOXICAM
     Indication: ARTHRALGIA
     Dosage: 15 MILLIGRAM, QD
     Route: 065
     Dates: start: 20160727, end: 20160728
  15. NIMESULIDA [Concomitant]
     Active Substance: NIMESULIDE
     Dosage: 100 MILLIGRAM, QD
     Route: 065
     Dates: start: 20160623, end: 20160623
  16. HEMO?8R [Suspect]
     Active Substance: ANTIHEMOPHILIC FACTOR, HUMAN RECOMBINANT
     Dosage: 1500 INTERNATIONAL UNIT, 8/8H FOR 4 DAYS
     Route: 042
     Dates: start: 20210612, end: 20210617
  17. NIMESULIDA [Concomitant]
     Active Substance: NIMESULIDE
     Indication: CONTUSION
     Dosage: 100 MILLIGRAM, QD
     Route: 065
     Dates: start: 20160721, end: 20160721
  18. HEMO?8R [Suspect]
     Active Substance: ANTIHEMOPHILIC FACTOR, HUMAN RECOMBINANT
     Indication: PROPHYLAXIS
     Dosage: UNK
     Route: 042
     Dates: start: 20210611
  19. IBUPROFEN. [Concomitant]
     Active Substance: IBUPROFEN
     Indication: VOMITING
  20. IBUPROFENO [Concomitant]
     Active Substance: IBUPROFEN
     Indication: PAIN
     Dosage: 600 MILLIGRAM, QD
     Route: 065
     Dates: start: 20160902, end: 20160905
  21. NIMESULIDA [Concomitant]
     Active Substance: NIMESULIDE
     Dosage: 100 MILLIGRAM, QD
     Route: 065
     Dates: start: 20160810, end: 20160816
  22. PARACETAMOL [Concomitant]
     Active Substance: ACETAMINOPHEN
     Indication: JOINT EFFUSION
     Dosage: 750 MILLIGRAM, QD
     Route: 065
     Dates: start: 20160826, end: 20160826

REACTIONS (1)
  - Ankle arthroplasty [Recovered/Resolved]

NARRATIVE: CASE EVENT DATE: 20210612
